FAERS Safety Report 10436390 (Version 1)
Quarter: 2014Q3

REPORT INFORMATION
  Report Type: Spontaneous
  Country: US (occurrence: None)
  Receive Date: 20140904
  Receipt Date: 20140904
  Transmission Date: 20150326
  Serious: Yes (Life-Threatening)
  Sender: FDA-Public Use
  Company Number: US-002997

PATIENT
  Age: 16 Year
  Sex: Male

DRUGS (5)
  1. FOMEPIZOLE (FOMEPIZOLE) INJECTION [Suspect]
     Active Substance: FOMEPIZOLE
     Indication: CHEMICAL POISONING
     Dosage: 15MG/KG OVER 30MINUTES, INTRAVENOUS
     Route: 042
  2. CALCIUM GLUCONATE (CALCIUM GLUCEPTATE, CALCIUM GLUCONATE) [Concomitant]
     Active Substance: CALCIUM GLUCONATE
  3. INSULIN (INSULIN PORCINE) [Concomitant]
     Active Substance: INSULIN PORK\INSULIN PURIFIED PORK
  4. ONDANSETRON HCL (ONDANSETRON HYDROCHLORIDE) [Concomitant]
     Active Substance: ONDANSETRON HYDROCHLORIDE
  5. DEXTROSE. [Concomitant]
     Active Substance: DEXTROSE

REACTIONS (8)
  - Hypoxia [None]
  - Respiratory arrest [None]
  - Haemodialysis [None]
  - Blood creatinine increased [None]
  - Tachypnoea [None]
  - Anaphylactic reaction [None]
  - Wheezing [None]
  - Flushing [None]
